FAERS Safety Report 24233962 (Version 1)
Quarter: 2024Q3

REPORT INFORMATION
  Report Type: Spontaneous
  Country: FR (occurrence: FR)
  Receive Date: 20240821
  Receipt Date: 20240821
  Transmission Date: 20241017
  Serious: Yes (Hospitalization, Other)
  Sender: PFIZER
  Company Number: FR-PFIZER INC-202300350302

PATIENT
  Age: 27 Year
  Sex: Female

DRUGS (6)
  1. OXBRYTA [Suspect]
     Active Substance: VOXELOTOR
     Indication: Sickle cell anaemia
     Dosage: UNK
     Dates: start: 202201, end: 202301
  2. FOLIC ACID [Concomitant]
     Active Substance: FOLIC ACID
     Indication: Haemolysis
     Dosage: 5 MG PER DAY, 1 CAPSULE EVERY DAY
  3. CHOLECALCIFEROL [Concomitant]
     Active Substance: CHOLECALCIFEROL
     Dosage: 50000 IU
     Dates: start: 202302, end: 202306
  4. ACETAMINOPHEN [Concomitant]
     Active Substance: ACETAMINOPHEN
     Dosage: 1 G IN CASE OF PAIN
  5. PARACETAMOL CODEINE ALMUS [Concomitant]
     Dosage: 2 CAPSULES IN CASE OF PAIN
  6. MAGNE B6 [Concomitant]
     Active Substance: MAGNESIUM\PYRIDOXINE
     Dosage: 2 CAPSULES 2X/DAY, 10 DAYS ON FEB2023 AND DURING JUN2023

REACTIONS (3)
  - Exposure during pregnancy [Unknown]
  - Cholestasis of pregnancy [Unknown]
  - Sickle cell anaemia with crisis [Unknown]
